FAERS Safety Report 6788162-2 (Version None)
Quarter: 2010Q2

REPORT INFORMATION
  Report Type: 
  Country: None (occurrence: None)
  Receive Date: 20100623
  Receipt Date: 20080114
  Transmission Date: 20101027
  Serious: Yes (Hospitalization)
  Sender: FDA-Public Use
  Company Number: US-PFIZER INC-2008005668

PATIENT
  Sex: Male
  Weight: 58 kg

DRUGS (4)
  1. CARBOPROST TROMETAMOL SOLUTION, STERILE [Suspect]
     Dosage: ONCE
     Dates: start: 20080109, end: 20080109
  2. COSOPT [Concomitant]
     Indication: GLAUCOMA
  3. ACETYLSALICYLIC ACID [Concomitant]
     Indication: PARKINSON'S DISEASE
  4. CARBIDOPA [Concomitant]

REACTIONS (4)
  - AGITATION [None]
  - PYREXIA [None]
  - VISION BLURRED [None]
  - WRONG DRUG ADMINISTERED [None]
